FAERS Safety Report 10948156 (Version 1)
Quarter: 2015Q1

REPORT INFORMATION
  Report Type: Spontaneous
  Country: JP (occurrence: JP)
  Receive Date: 20150324
  Receipt Date: 20150324
  Transmission Date: 20150721
  Serious: Yes (Death, Other)
  Sender: FDA-Public Use
  Company Number: JP-ROCHE-1426717

PATIENT
  Age: 69 Year
  Sex: Female
  Weight: 42 kg

DRUGS (2)
  1. PACLITAXEL. [Concomitant]
     Active Substance: PACLITAXEL
     Indication: BREAST CANCER RECURRENT
     Dosage: COMPLETED TREATMENT CYCLE NUMBER: 2.5
     Route: 041
     Dates: start: 20120803, end: 20121121
  2. AVASTIN [Suspect]
     Active Substance: BEVACIZUMAB
     Indication: BREAST CANCER RECURRENT
     Dosage: TREATMENT LINE: 3RD?COMPLETED TREATMENT CYCLE NUMBER: 1
     Route: 041
     Dates: start: 20120812, end: 20120907

REACTIONS (4)
  - Epistaxis [Recovered/Resolved]
  - Febrile neutropenia [Recovered/Resolved]
  - Haemorrhoidal haemorrhage [Recovered/Resolved]
  - Breast cancer [Fatal]

NARRATIVE: CASE EVENT DATE: 20120816
